FAERS Safety Report 5114703-7 (Version None)
Quarter: 2006Q3

REPORT INFORMATION
  Report Type: 
  Country: None (occurrence: None)
  Receive Date: 20060926
  Receipt Date: 20060822
  Transmission Date: 20061208
  Serious: Yes (Other)
  Sender: FDA-Public Use
  Company Number: US-ROCHE-461117

PATIENT
  Age: 48 Year
  Sex: Female
  Weight: 67.1 kg

DRUGS (1)
  1. BONIVA [Suspect]
     Indication: DRUG USE FOR UNKNOWN INDICATION
     Route: 048
     Dates: start: 20060615, end: 20060815

REACTIONS (3)
  - CHEILITIS [None]
  - DRY MOUTH [None]
  - SWELLING [None]
